FAERS Safety Report 25281438 (Version 2)
Quarter: 2025Q2

REPORT INFORMATION
  Report Type: Spontaneous
  Country: US (occurrence: US)
  Receive Date: 20250508
  Receipt Date: 20250520
  Transmission Date: 20250716
  Serious: Yes (Other)
  Sender: TEVA
  Company Number: US-TEVA-VS-3327383

PATIENT
  Age: 80 Year
  Sex: Female

DRUGS (4)
  1. OXYCODONE [Suspect]
     Active Substance: OXYCODONE
     Indication: Intervertebral disc degeneration
     Route: 065
  2. SODIUM CHLORIDE [Suspect]
     Active Substance: SODIUM CHLORIDE
     Indication: Constipation
     Route: 065
  3. GLYCERIN [Suspect]
     Active Substance: GLYCERIN
     Indication: Constipation
     Route: 065
  4. MINERAL OIL [Suspect]
     Active Substance: MINERAL OIL
     Indication: Constipation
     Route: 065

REACTIONS (2)
  - Pseudomembranous colitis [Recovered/Resolved]
  - Constipation [Recovered/Resolved]
